FAERS Safety Report 19994088 (Version 1)
Quarter: 2021Q4

REPORT INFORMATION
  Report Type: Spontaneous
  Country: KR (occurrence: KR)
  Receive Date: 20211025
  Receipt Date: 20211025
  Transmission Date: 20220303
  Serious: Yes (Other)
  Sender: FDA-Public Use
  Company Number: KR-SCILEX PHARMACEUTICALS INC.-2021SCX00037

PATIENT
  Age: 47 Year
  Sex: Female

DRUGS (1)
  1. LIDOCAINE [Suspect]
     Active Substance: LIDOCAINE
     Indication: Anaesthesia
     Dosage: 6 ML
     Route: 008

REACTIONS (2)
  - Toxicity to various agents [Recovered/Resolved]
  - Nerve root injury [Recovering/Resolving]
